FAERS Safety Report 21002556 (Version 2)
Quarter: 2022Q4

REPORT INFORMATION
  Report Type: Spontaneous
  Country: US (occurrence: US)
  Receive Date: 20220624
  Receipt Date: 20221226
  Transmission Date: 20230112
  Serious: No
  Sender: FDA-Public Use
  Company Number: US-BioHaven Pharmaceuticals-2022BHV001259

PATIENT
  Age: 64 Year
  Sex: Female
  Weight: 72.640 kg

DRUGS (7)
  1. NURTEC ODT [Suspect]
     Active Substance: RIMEGEPANT SULFATE
     Indication: Migraine prophylaxis
     Dosage: I WAS USING UBRELVY CONSISTENTLY AND JUST TAKING NURTEC AS NEEDED AND THIS STRATEGY DIDN^T WORK WELL
     Route: 048
     Dates: start: 202003
  2. NURTEC ODT [Suspect]
     Active Substance: RIMEGEPANT SULFATE
     Dosage: UNKNOWN
     Route: 048
     Dates: start: 20220503
  3. NURTEC ODT [Suspect]
     Active Substance: RIMEGEPANT SULFATE
     Dosage: 1 WHITE ODT
     Route: 048
     Dates: start: 20220913
  4. AJOVY [Concomitant]
     Active Substance: FREMANEZUMAB-VFRM
     Indication: Product used for unknown indication
     Route: 065
  5. MESTINON [Concomitant]
     Active Substance: PYRIDOSTIGMINE BROMIDE
     Indication: Product used for unknown indication
     Dosage: UNKNOWN
     Route: 065
  6. GABAPENTIN [Concomitant]
     Active Substance: GABAPENTIN
     Indication: Product used for unknown indication
     Dosage: 300 BID PRN
     Route: 065
  7. UNSPECIFIED INGREDIENT [Concomitant]
     Active Substance: UNSPECIFIED INGREDIENT
     Indication: Product used for unknown indication
     Dosage: 3 L SALINE PER DAY PRN + A BAG OF TPN IV PRN
     Route: 065

REACTIONS (7)
  - Product dose omission issue [Recovered/Resolved]
  - Migraine [Recovered/Resolved]
  - Drug ineffective [Recovered/Resolved]
  - Hypertension [Unknown]
  - Product distribution issue [Unknown]
  - Product temperature excursion issue [Unknown]
  - Poor quality product administered [Unknown]

NARRATIVE: CASE EVENT DATE: 20220101
